FAERS Safety Report 12638871 (Version 2)
Quarter: 2016Q3

REPORT INFORMATION
  Report Type: Report from Study
  Country: PL (occurrence: PL)
  Receive Date: 20160809
  Receipt Date: 20160824
  Transmission Date: 20161109
  Serious: Yes (Hospitalization, Other)
  Sender: FDA-Public Use
  Company Number: PL-ABBVIE-16P-129-1689985-00

PATIENT
  Age: 17 Year
  Sex: Male
  Weight: 57 kg

DRUGS (8)
  1. ENCORTON [Concomitant]
     Active Substance: PREDNISONE
     Indication: COLITIS ULCERATIVE
     Dosage: 15 MG MAX DOSE (5 MG LAST DOSE)
     Route: 048
     Dates: start: 20160404, end: 20160411
  2. HUMIRA [Suspect]
     Active Substance: ADALIMUMAB
     Indication: COLITIS ULCERATIVE
     Route: 058
     Dates: start: 20160712, end: 20160726
  3. MESALAZINUM [Concomitant]
     Active Substance: MESALAMINE
     Indication: COLITIS ULCERATIVE
     Route: 048
     Dates: start: 20160225, end: 20160809
  4. OMEPRAZOLUM [Concomitant]
     Indication: COLITIS ULCERATIVE
     Route: 048
     Dates: start: 20160731, end: 20160801
  5. OMEPRAZOLUM [Concomitant]
     Route: 042
     Dates: start: 20160727, end: 20160809
  6. ENCORTON [Concomitant]
     Active Substance: PREDNISONE
     Route: 048
     Dates: start: 20160614, end: 20160804
  7. FERROPLEX [Concomitant]
     Indication: ANAEMIA
     Route: 048
     Dates: start: 20160614, end: 20160729
  8. CALCIUM [Concomitant]
     Active Substance: CALCIUM
     Indication: COLITIS ULCERATIVE
     Route: 048
     Dates: start: 20160731

REACTIONS (2)
  - Pericarditis [Recovered/Resolved]
  - Anaemia [Not Recovered/Not Resolved]

NARRATIVE: CASE EVENT DATE: 20160729
